FAERS Safety Report 8309501-7 (Version None)
Quarter: 2012Q2

REPORT INFORMATION
  Report Type: 
  Country: None (occurrence: None)
  Receive Date: 20120425
  Receipt Date: 20120423
  Transmission Date: 20120825
  Serious: No
  Sender: FDA-Public Use
  Company Number: US-PFIZER INC-2012101277

PATIENT
  Sex: Male
  Weight: 81.633 kg

DRUGS (2)
  1. CHANTIX [Suspect]
     Indication: SMOKING CESSATION THERAPY
     Dosage: UNK
     Route: 048
     Dates: start: 20120401, end: 20120401
  2. PERCOCET [Concomitant]
     Indication: PAIN
     Dosage: UNK

REACTIONS (3)
  - BLISTER [None]
  - PRURITUS [None]
  - SKIN DISORDER [None]
